FAERS Safety Report 8528717 (Version 3)
Quarter: 2012Q4

REPORT INFORMATION
  Report Type: 
  Country: BR (occurrence: BR)
  Receive Date: 20120425
  Receipt Date: 20121026
  Transmission Date: 20130627
  Serious: Yes (Hospitalization)
  Sender: FDA-Public Use
  Company Number: BR-ASTRAZENECA-2012SE25047

PATIENT
  Age: 52 Year
  Sex: Male
  Weight: 89 kg

DRUGS (3)
  1. CRESTOR [Suspect]
     Indication: BLOOD CHOLESTEROL INCREASED
     Route: 048
     Dates: start: 201108, end: 201209
  2. CRESTOR [Suspect]
     Indication: BLOOD CHOLESTEROL INCREASED
     Route: 048
  3. BRILINTA [Suspect]
     Indication: PREOPERATIVE CARE
     Route: 048
     Dates: start: 201202

REACTIONS (6)
  - Angina pectoris [Not Recovered/Not Resolved]
  - Venous occlusion [Unknown]
  - Venous stenosis [Unknown]
  - Dyspnoea [Not Recovered/Not Resolved]
  - Wound haemorrhage [Recovered/Resolved]
  - Face injury [Recovered/Resolved]
